FAERS Safety Report 5741425-1 (Version None)
Quarter: 2008Q2

REPORT INFORMATION
  Report Type: 
  Country: None (occurrence: None)
  Receive Date: 20080514
  Receipt Date: 20080507
  Transmission Date: 20081010
  Serious: Yes (Death)
  Sender: FDA-Public Use
  Company Number: TCI2008A02184

PATIENT
  Age: 62 Year
  Sex: Male

DRUGS (8)
  1. LANSAP 800 (LANSOPRAZOLE, CLARITHROMYCIN, AMOXICILLIN) (PREPARATION FO [Suspect]
     Indication: GASTRIC ULCER
     Dosage: 1 CARD (0.5 CARD, 2 IN 1 D) PER ORAL
     Route: 048
     Dates: start: 20080414, end: 20080418
  2. LANSAP 800 (LANSOPRAZOLE, CLARITHROMYCIN, AMOXICILLIN) (PREPARATION FO [Suspect]
     Indication: HELICOBACTER INFECTION
     Dosage: 1 CARD (0.5 CARD, 2 IN 1 D) PER ORAL
     Route: 048
     Dates: start: 20080414, end: 20080418
  3. NU LOTAN (LOSARTAN POTASSIUM) (TABLETS) [Concomitant]
  4. SELBEX (TEPRENONE) (CAPSULES) [Concomitant]
  5. THYRADIN S (LEVOTHYROXINE SODIUM) (TABLETS0 [Concomitant]
  6. ENTERONON-R (ENTERONON R) (PREPARATION FOR ORAL USE (NOS)) [Concomitant]
  7. TANATRIL (IMIDAPRIL HYROCHLORDIE) (TABLETS) [Concomitant]
  8. CALTAN (PRECIPITATED CALCIUM CARBONATE) (TABLETS) [Concomitant]

REACTIONS (15)
  - BLOOD PRESSURE DECREASED [None]
  - C-REACTIVE PROTEIN INCREASED [None]
  - DEPRESSED LEVEL OF CONSCIOUSNESS [None]
  - DIARRHOEA [None]
  - DISSEMINATED INTRAVASCULAR COAGULATION [None]
  - ENTEROCOLITIS [None]
  - GASTROENTERITIS STAPHYLOCOCCAL [None]
  - HAEMODIALYSIS [None]
  - IMMUNOSUPPRESSION [None]
  - MULTI-ORGAN FAILURE [None]
  - PLATELET COUNT DECREASED [None]
  - PYREXIA [None]
  - SHOCK [None]
  - VOLUME BLOOD DECREASED [None]
  - WHITE BLOOD CELL COUNT DECREASED [None]
